FAERS Safety Report 22331784 (Version 1)
Quarter: 2023Q2

REPORT INFORMATION
  Report Type: Report from Study
  Country: US (occurrence: None)
  Receive Date: 20230517
  Receipt Date: 20230517
  Transmission Date: 20230722
  Serious: Yes (Life-Threatening, Hospitalization, Other)
  Sender: FDA-Public Use
  Company Number: US-ROCHE-3349647

PATIENT

DRUGS (12)
  1. RITUXIMAB [Suspect]
     Active Substance: RITUXIMAB
     Indication: Burkitt^s lymphoma
     Route: 065
     Dates: start: 20161009
  2. RITUXIMAB [Suspect]
     Active Substance: RITUXIMAB
     Dosage: SUBSEQUENT DOSING ON 26-10-2016, 17-11-2016, 09-12-2016, 13-01-2017, 07-02-2017
     Route: 065
     Dates: start: 20161004, end: 20161004
  3. CYCLOPHOSPHAMIDE [Suspect]
     Active Substance: CYCLOPHOSPHAMIDE
     Indication: Burkitt^s lymphoma
     Route: 065
     Dates: start: 20161009
  4. CYCLOPHOSPHAMIDE [Suspect]
     Active Substance: CYCLOPHOSPHAMIDE
     Route: 065
     Dates: start: 20161030
  5. CYCLOPHOSPHAMIDE [Suspect]
     Active Substance: CYCLOPHOSPHAMIDE
     Dosage: SUBSEQUENT DOSING ON 14-12-2016, 18-01-2017, 12-02-2017
     Route: 065
     Dates: start: 20161122
  6. METHOTREXATE [Suspect]
     Active Substance: METHOTREXATE
     Indication: Burkitt^s lymphoma
     Dosage: SUBSEQUENT DOSING ON 21-10-2016, 19-10-2016, 06-10-2016, 03-10-2016, 01-11-2016, 28-10-2016, 03-11-2
     Route: 065
     Dates: start: 20161025
  7. VINCRISTINE [Suspect]
     Active Substance: VINCRISTINE
     Indication: Burkitt^s lymphoma
     Dosage: SUBSEQUENT DOSING ON  26-10-2016,17-11-2016, 10-12-2016
     Route: 065
     Dates: start: 20161004
  8. VINCRISTINE [Suspect]
     Active Substance: VINCRISTINE
     Dosage: SUBS DOSING ON 08-02-2017
     Route: 065
     Dates: start: 20170114
  9. PREDNISONE [Suspect]
     Active Substance: PREDNISONE
     Indication: Burkitt^s lymphoma
     Dosage: SUSEQUENT DOSING ON 26-10-2016, 17-11-2016, 10-12-2016, 14-01-2017, 08-02-2017
     Route: 065
     Dates: start: 20161004
  10. FILGRASTIM [Suspect]
     Active Substance: FILGRASTIM
     Indication: Burkitt^s lymphoma
     Dosage: DOSING ON 26-10-2016
     Route: 065
     Dates: start: 20161010
  11. ETOPOSIDE [Suspect]
     Active Substance: ETOPOSIDE
     Indication: Burkitt^s lymphoma
     Dosage: SUBSEQUENT DOSING ON 26-10-2016, 17-11-2016, 10-12-2016, 14-01-2017, 08-02-2017
     Route: 065
     Dates: start: 20161004
  12. DOXORUBICIN [Suspect]
     Active Substance: DOXORUBICIN
     Indication: Burkitt^s lymphoma
     Dosage: SUBSEQUENT DOSING ON 26-10-2016, 17-11-2016, 10-12-2016, 14-01-2017, 08-02-2017
     Route: 065
     Dates: start: 20161004

REACTIONS (12)
  - Anaemia [Recovered/Resolved]
  - Febrile neutropenia [Recovered/Resolved]
  - Neutrophil count decreased [Recovered/Resolved]
  - Platelet count decreased [Recovered/Resolved]
  - Hyperglycaemia [Recovered/Resolved]
  - Hypokalaemia [Recovered/Resolved]
  - Hypophosphataemia [Recovered/Resolved]
  - Lymphocyte count decreased [Recovered/Resolved]
  - White blood cell count decreased [Recovered/Resolved]
  - Vascular access complication [Not Recovered/Not Resolved]
  - Hyponatraemia [Recovered/Resolved]
  - Myelodysplastic syndrome [Unknown]

NARRATIVE: CASE EVENT DATE: 20161011
